FAERS Safety Report 10622333 (Version 4)
Quarter: 2014Q4

REPORT INFORMATION
  Report Type: Report from Study
  Country: US (occurrence: US)
  Receive Date: 20141203
  Receipt Date: 20141222
  Transmission Date: 20150529
  Serious: Yes (Hospitalization)
  Sender: FDA-Public Use
  Company Number: US-SA-2014SA165122

PATIENT
  Age: 47 Year
  Sex: Male
  Weight: 103 kg

DRUGS (13)
  1. NITROSTAT [Concomitant]
     Active Substance: NITROGLYCERIN
     Route: 048
     Dates: start: 2008
  2. HYDROCODONE [Concomitant]
     Active Substance: HYDROCODONE
     Route: 048
     Dates: start: 201406
  3. VITAMIN D [Concomitant]
     Active Substance: CHOLECALCIFEROL
     Route: 048
     Dates: start: 201210
  4. NEURONTIN [Concomitant]
     Active Substance: GABAPENTIN
     Route: 048
     Dates: start: 201406, end: 20141128
  5. PLAVIX [Concomitant]
     Active Substance: CLOPIDOGREL BISULFATE
     Route: 048
     Dates: start: 2008
  6. SUMATRIPTAN. [Concomitant]
     Active Substance: SUMATRIPTAN
     Route: 065
     Dates: start: 2013
  7. TERIFLUNOMIDE [Suspect]
     Active Substance: TERIFLUNOMIDE
     Indication: MULTIPLE SCLEROSIS RELAPSE
     Route: 048
     Dates: start: 20140409, end: 20141122
  8. RESTORIL [Concomitant]
     Active Substance: TEMAZEPAM
     Route: 048
     Dates: start: 2012
  9. CORTICOSTEROID NOS [Concomitant]
     Active Substance: CORTICOSTEROID NOS
  10. VITAMIN B12 [Concomitant]
     Active Substance: CYANOCOBALAMIN
     Dosage: DOSE:1 UNIT(S)
     Route: 030
     Dates: start: 2004
  11. NIFEDIPINE. [Concomitant]
     Active Substance: NIFEDIPINE
     Route: 048
     Dates: start: 2008
  12. SIMVASTATIN. [Concomitant]
     Active Substance: SIMVASTATIN
     Route: 048
     Dates: start: 2012
  13. FOLIC ACID. [Concomitant]
     Active Substance: FOLIC ACID
     Route: 048
     Dates: start: 2008

REACTIONS (5)
  - Pneumonia [Recovered/Resolved]
  - Acute myocardial infarction [Recovered/Resolved]
  - Asthenia [Recovered/Resolved]
  - Diarrhoea [Recovered/Resolved]
  - Alanine aminotransferase increased [Recovered/Resolved]

NARRATIVE: CASE EVENT DATE: 20141123
